FAERS Safety Report 12168087 (Version 1)
Quarter: 2016Q1

REPORT INFORMATION
  Report Type: Spontaneous
  Country: US (occurrence: None)
  Receive Date: 20160309
  Receipt Date: 20160309
  Transmission Date: 20160526
  Serious: Yes (Other)
  Sender: FDA-Public Use
  Company Number: None

PATIENT
  Sex: Female

DRUGS (1)
  1. ROPIV 0.1% WITH FENT 2 MCG/ML 0.1% + 2 MCG/ML PHARMEDIUM [Suspect]
     Active Substance: FENTANYL\ROPIVACAINE
     Indication: PAIN
     Dosage: CONTINUOUS EPIDURAL
     Route: 008

REACTIONS (3)
  - Incorrect dose administered [None]
  - Drug dispensed to wrong patient [None]
  - Product packaging quantity issue [None]

NARRATIVE: CASE EVENT DATE: 20160121
